FAERS Safety Report 12461720 (Version 1)
Quarter: 2016Q2

REPORT INFORMATION
  Report Type: Report from Study
  Country: US (occurrence: US)
  Receive Date: 20160613
  Receipt Date: 20160613
  Transmission Date: 20160815
  Serious: Yes (Hospitalization)
  Sender: FDA-Public Use
  Company Number: US-TEVA-665755USA

PATIENT
  Age: 63 Year
  Sex: Male
  Weight: 100.11 kg

DRUGS (4)
  1. CELECOXIB/PLACEBO [Suspect]
     Active Substance: CELECOXIB\PLACEBO
     Indication: ADENOCARCINOMA OF COLON
     Dosage: BLINDED
     Dates: start: 20160126, end: 20160208
  2. ELOXATIN [Suspect]
     Active Substance: OXALIPLATIN
     Indication: ADENOCARCINOMA OF COLON
     Dosage: OVER 2 HOURS
     Route: 042
     Dates: start: 20160125, end: 20160125
  3. LEUCOVORIN CALCIUM. [Suspect]
     Active Substance: LEUCOVORIN CALCIUM
     Indication: ADENOCARCINOMA OF COLON
     Dosage: OVER 2 HR
     Route: 042
     Dates: start: 20160125, end: 20160125
  4. FLUOROURACIL. [Suspect]
     Active Substance: FLUOROURACIL
     Indication: ADENOCARCINOMA OF COLON
     Dosage: OVER 2 HOURS
     Route: 040
     Dates: start: 20160125, end: 20160125

REACTIONS (1)
  - Embolism [Recovering/Resolving]

NARRATIVE: CASE EVENT DATE: 20160208
